FAERS Safety Report 20723965 (Version 1)
Quarter: 2022Q2

REPORT INFORMATION
  Report Type: Report from Study
  Country: US (occurrence: US)
  Receive Date: 20220419
  Receipt Date: 20220419
  Transmission Date: 20220721
  Serious: Yes (Death, Other)
  Sender: FDA-Public Use
  Company Number: US-GILEAD-2022-0578240

PATIENT
  Age: 86 Year
  Sex: Female

DRUGS (42)
  1. AMBRISENTAN [Suspect]
     Active Substance: AMBRISENTAN
     Indication: Pulmonary arterial hypertension
     Dosage: 10 MG, QD
     Route: 065
     Dates: start: 20150908
  2. ALBUTEROL [Concomitant]
     Active Substance: ALBUTEROL
  3. BENEFIBER [WHEAT DEXTRIN] [Concomitant]
  4. BISACODYL [Concomitant]
     Active Substance: BISACODYL
  5. BUMETANIDE [Concomitant]
     Active Substance: BUMETANIDE
  6. BUMEX [Concomitant]
     Active Substance: BUMETANIDE
  7. CELECOXIB [Concomitant]
     Active Substance: CELECOXIB
  8. COLACE [Concomitant]
     Active Substance: DOCUSATE SODIUM
  9. DULCOLAX (BISACODYL) [Concomitant]
     Active Substance: BISACODYL
  10. DURAGESIC [Concomitant]
     Active Substance: FENTANYL
  11. EFFEXOR [Concomitant]
     Active Substance: VENLAFAXINE HYDROCHLORIDE
  12. FENTANYL [Concomitant]
     Active Substance: FENTANYL
  13. FERROUS SULFATE [Concomitant]
     Active Substance: FERROUS SULFATE
  14. FLEET [GLYCEROL] [Concomitant]
  15. FLORASTOR [LACTOBACILLUS ACIDOPHILUS] [Concomitant]
  16. FOSAMAX [Concomitant]
     Active Substance: ALENDRONATE SODIUM
  17. GLUCAGON [Concomitant]
     Active Substance: GLUCAGON
  18. IMODIUM [Concomitant]
     Active Substance: LOPERAMIDE HYDROCHLORIDE
  19. KOMBIGLYZE XR [Concomitant]
     Active Substance: METFORMIN HYDROCHLORIDE\SAXAGLIPTIN HYDROCHLORIDE
  20. MAGNESIUM [Concomitant]
     Active Substance: MAGNESIUM
  21. MELATONIN [Concomitant]
     Active Substance: MELATONIN
  22. METFORMIN [Concomitant]
     Active Substance: METFORMIN HYDROCHLORIDE
  23. MILK OF MAGNESIA [Concomitant]
     Active Substance: MAGNESIUM HYDROXIDE
  24. MIRALAX [Concomitant]
     Active Substance: POLYETHYLENE GLYCOL 3350
  25. NEURONTIN [Concomitant]
     Active Substance: GABAPENTIN
  26. PANTOPRAZOLE [Concomitant]
     Active Substance: PANTOPRAZOLE
  27. PRAVACHOL [Concomitant]
     Active Substance: PRAVASTATIN SODIUM
  28. MINERALS\VITAMINS [Concomitant]
     Active Substance: MINERALS\VITAMINS
  29. PROBIOTICS NOS [Concomitant]
     Active Substance: PROBIOTICS NOS
  30. OMEPRAZOLE [Concomitant]
     Active Substance: OMEPRAZOLE
  31. REQUIP [Concomitant]
     Active Substance: ROPINIROLE HYDROCHLORIDE
  32. SENNALAX [SENNA SPP. EXTRACT] [Concomitant]
  33. SOTALOL [Concomitant]
     Active Substance: SOTALOL
  34. SYSTANE (HYPROMELLOSE 2910 (4000 MPA.S)) [Concomitant]
     Active Substance: HYPROMELLOSE 2910 (4000 MPA.S)
  35. THEREMS [ASCORBIC ACID;CALCIUM PANTOTHENATE;CYANOCOBALAMIN;ERGOCALCIFE [Concomitant]
  36. TOVIAZ [Concomitant]
     Active Substance: FESOTERODINE FUMARATE
  37. TRAMADOL [Concomitant]
     Active Substance: TRAMADOL
  38. TYLENOL [Concomitant]
     Active Substance: ACETAMINOPHEN
  39. VENLAFAXINE [Concomitant]
     Active Substance: VENLAFAXINE HYDROCHLORIDE
  40. VESICARE [Concomitant]
     Active Substance: SOLIFENACIN SUCCINATE
  41. VITAMIN D3 [Concomitant]
     Active Substance: CHOLECALCIFEROL
  42. ZOFRAN [Concomitant]
     Active Substance: ONDANSETRON HYDROCHLORIDE

REACTIONS (1)
  - Death [Fatal]

NARRATIVE: CASE EVENT DATE: 20220413
